FAERS Safety Report 9950944 (Version 1)
Quarter: 2014Q1

REPORT INFORMATION
  Report Type: Report from Study
  Country: US (occurrence: US)
  Receive Date: 20140304
  Receipt Date: 20140304
  Transmission Date: 20141002
  Serious: No
  Sender: FDA-Public Use
  Company Number: US-ABBVIE-13P-163-1069944-00

PATIENT
  Age: 27 Year
  Sex: Female

DRUGS (8)
  1. HUMIRA [Suspect]
     Indication: CROHN^S DISEASE
     Dates: start: 201210
  2. ALENDRONATE [Concomitant]
     Indication: OSTEOPENIA
     Dosage: 70MG
  3. CITALOPRAM [Concomitant]
     Indication: GASTRIC DISORDER
     Dosage: 40MG
  4. LANSOPRAZOLE [Concomitant]
     Indication: CROHN^S DISEASE
     Dosage: 30MG
  5. LEVOTHYROXINE [Concomitant]
     Indication: HORMONE REPLACEMENT THERAPY
     Dosage: 0.05MCG
  6. LISINOPRIL [Concomitant]
     Indication: HYPERTENSION
     Dosage: 10MG
  7. LOVASTATIN [Concomitant]
     Indication: BLOOD CHOLESTEROL INCREASED
     Dosage: 30MG
  8. PATCH HORMONE THERAPY [Concomitant]
     Indication: PRODUCT USED FOR UNKNOWN INDICATION
     Dosage: 0.1MG

REACTIONS (3)
  - Pain [Not Recovered/Not Resolved]
  - Nausea [Not Recovered/Not Resolved]
  - Diarrhoea [Not Recovered/Not Resolved]
